FAERS Safety Report 8558923-8 (Version None)
Quarter: 2012Q3

REPORT INFORMATION
  Report Type: 
  Country: None (occurrence: None)
  Receive Date: 20120802
  Receipt Date: 20120719
  Transmission Date: 20120928
  Serious: Yes (Other)
  Sender: FDA-Public Use
  Company Number: NL-MYLANLABS-2012S1014807

PATIENT
  Age: 18 Year
  Sex: Female
  Weight: 58 kg

DRUGS (1)
  1. FLUOXETINE HCL [Suspect]
     Indication: DEPRESSION
     Dosage: 1X DAAGS 1 CAPSULE 20 MG
     Route: 048
     Dates: start: 20120710

REACTIONS (6)
  - VISUAL ACUITY REDUCED [None]
  - HEADACHE [None]
  - PANIC ATTACK [None]
  - INSOMNIA [None]
  - FATIGUE [None]
  - ABDOMINAL PAIN UPPER [None]
